FAERS Safety Report 10377155 (Version 1)
Quarter: 2014Q3

REPORT INFORMATION
  Report Type: Report from Study
  Country: US (occurrence: US)
  Receive Date: 20140812
  Receipt Date: 20140812
  Transmission Date: 20150326
  Serious: Yes (Hospitalization, Other)
  Sender: FDA-Public Use
  Company Number: US-BIOGENIDEC-2014BI078756

PATIENT
  Sex: Male

DRUGS (1)
  1. TYSABRI [Suspect]
     Active Substance: NATALIZUMAB
     Indication: CROHN^S DISEASE
     Route: 042
     Dates: start: 20140401

REACTIONS (10)
  - Convulsion [Unknown]
  - Epilepsy [Unknown]
  - Anal dilation procedure [Unknown]
  - Back pain [Unknown]
  - Musculoskeletal pain [Unknown]
  - Gait disturbance [Unknown]
  - Headache [Unknown]
  - Muscle spasms [Unknown]
  - Neck pain [Unknown]
  - Rheumatoid arthritis [Unknown]
